FAERS Safety Report 6381803-3 (Version None)
Quarter: 2009Q3

REPORT INFORMATION
  Report Type: 
  Country: None (occurrence: None)
  Receive Date: 20090930
  Receipt Date: 20090917
  Transmission Date: 20100115
  Serious: Yes (Other)
  Sender: FDA-Public Use
  Company Number: JP-RANBAXY-2009RR-27940

PATIENT
  Age: 77 Year
  Sex: Male

DRUGS (6)
  1. FENOFIBRATE [Suspect]
     Indication: HYPERLIPIDAEMIA
     Dosage: 200 MG, UNK
     Route: 048
     Dates: start: 20090611, end: 20090806
  2. AMLODIPINE BESYLATE [Concomitant]
     Indication: DRUG USE FOR UNKNOWN INDICATION
     Route: 065
  3. MONTELUKAST SODIUM [Concomitant]
     Indication: DRUG USE FOR UNKNOWN INDICATION
     Route: 065
  4. FLUTICASONE PROPIONATE [Concomitant]
     Indication: DRUG USE FOR UNKNOWN INDICATION
     Route: 065
  5. SULPIRIDE [Concomitant]
     Indication: DRUG USE FOR UNKNOWN INDICATION
     Route: 065
  6. BEZAFIBRATE [Concomitant]
     Route: 065

REACTIONS (4)
  - ABDOMINAL DISCOMFORT [None]
  - GAMMA-GLUTAMYLTRANSFERASE INCREASED [None]
  - MALAISE [None]
  - TRANSAMINASES INCREASED [None]
